FAERS Safety Report 5615070-2 (Version None)
Quarter: 2008Q1

REPORT INFORMATION
  Report Type: 
  Country: None (occurrence: None)
  Receive Date: 20080206
  Receipt Date: 20080130
  Transmission Date: 20080703
  Serious: Yes (Hospitalization)
  Sender: FDA-Public Use
  Company Number: FR-JNJFOC-20080107496

PATIENT
  Age: 75 Year
  Sex: Male

DRUGS (3)
  1. REMICADE [Suspect]
     Indication: CROHN'S DISEASE
     Route: 042
  2. REMICADE [Suspect]
     Indication: ANKYLOSING SPONDYLITIS
     Route: 042
  3. CORTICOIDS [Concomitant]

REACTIONS (1)
  - PERITONEAL TUBERCULOSIS [None]
